FAERS Safety Report 10593896 (Version 2)
Quarter: 2014Q4

REPORT INFORMATION
  Report Type: Spontaneous
  Country: US (occurrence: US)
  Receive Date: 20141119
  Receipt Date: 20141119
  Transmission Date: 20150529
  Serious: No
  Sender: FDA-Public Use
  Company Number: US-ELI_LILLY_AND_COMPANY-US201407002998

PATIENT
  Sex: Male
  Weight: 126.53 kg

DRUGS (4)
  1. INSULIN HUMAN [Suspect]
     Active Substance: INSULIN HUMAN
     Dosage: 0.24 ML, OTHER
     Route: 058
     Dates: start: 20130930
  2. INSULIN HUMAN [Suspect]
     Active Substance: INSULIN HUMAN
     Indication: DIABETES MELLITUS
     Dosage: 0.38 ML, OTHER
     Route: 058
     Dates: start: 20130930
  3. INSULIN HUMAN [Suspect]
     Active Substance: INSULIN HUMAN
     Dosage: 0.01 ML, OTHER
     Route: 058
     Dates: start: 201309
  4. XARELTO [Concomitant]
     Active Substance: RIVAROXABAN
     Route: 065

REACTIONS (3)
  - Weight increased [Unknown]
  - Weight decreased [Unknown]
  - Blood glucose increased [Unknown]
